FAERS Safety Report 10624767 (Version 2)
Quarter: 2014Q4

REPORT INFORMATION
  Report Type: Spontaneous
  Country: US (occurrence: US)
  Receive Date: 20141204
  Receipt Date: 20141217
  Transmission Date: 20150529
  Serious: Yes (Other)
  Sender: FDA-Public Use
  Company Number: US-BEH-2014046764

PATIENT
  Sex: Female

DRUGS (1)
  1. HIZENTRA [Suspect]
     Active Substance: HUMAN IMMUNOGLOBULIN G

REACTIONS (12)
  - Diarrhoea haemorrhagic [Unknown]
  - Dehydration [Unknown]
  - Blood sodium increased [Unknown]
  - Weight decreased [Unknown]
  - Blood pressure decreased [Unknown]
  - Headache [Unknown]
  - Pain [Unknown]
  - Bedridden [Unknown]
  - Back pain [Unknown]
  - Drug ineffective [Unknown]
  - Migraine [Unknown]
  - Vomiting [Unknown]
